FAERS Safety Report 13080139 (Version 4)
Quarter: 2017Q4

REPORT INFORMATION
  Report Type: Report from Study
  Country: None (occurrence: JP)
  Receive Date: 20170103
  Receipt Date: 20171227
  Transmission Date: 20180320
  Serious: Yes (Death, Hospitalization, Other)
  Sender: FDA-Public Use
  Company Number: JP-EISAI MEDICAL RESEARCH-EC-2016-016170

PATIENT
  Age: 39 Year
  Sex: Male
  Weight: 70 kg

DRUGS (13)
  1. METHAPAIN [Interacting]
     Active Substance: METHADONE HYDROCHLORIDE
     Route: 048
     Dates: start: 20160704
  2. HALAVEN [Suspect]
     Active Substance: ERIBULIN MESYLATE
     Route: 041
     Dates: start: 20160831, end: 20160831
  3. METHAPAIN [Interacting]
     Active Substance: METHADONE HYDROCHLORIDE
     Indication: PAIN
     Route: 048
     Dates: start: 20160216, end: 20160222
  4. METHAPAIN [Interacting]
     Active Substance: METHADONE HYDROCHLORIDE
     Route: 048
     Dates: start: 20160223, end: 20160329
  5. METHAPAIN [Interacting]
     Active Substance: METHADONE HYDROCHLORIDE
     Route: 048
     Dates: start: 20160330, end: 20160404
  6. METHAPAIN [Interacting]
     Active Substance: METHADONE HYDROCHLORIDE
     Route: 048
     Dates: start: 20160411, end: 20160418
  7. HALAVEN [Suspect]
     Active Substance: ERIBULIN MESYLATE
     Indication: DESMOPLASTIC SMALL ROUND CELL TUMOUR
     Route: 041
     Dates: start: 20160329, end: 20160728
  8. HALAVEN [Suspect]
     Active Substance: ERIBULIN MESYLATE
     Route: 041
     Dates: start: 20160804, end: 20160823
  9. METHAPAIN [Interacting]
     Active Substance: METHADONE HYDROCHLORIDE
     Route: 048
     Dates: start: 20160405, end: 20160410
  10. METHAPAIN [Interacting]
     Active Substance: METHADONE HYDROCHLORIDE
     Route: 048
     Dates: start: 20160419, end: 20160426
  11. METHAPAIN [Interacting]
     Active Substance: METHADONE HYDROCHLORIDE
     Route: 048
     Dates: start: 20160427, end: 20160514
  12. METHAPAIN [Interacting]
     Active Substance: METHADONE HYDROCHLORIDE
     Route: 048
     Dates: start: 20160515, end: 20160516
  13. METHAPAIN [Interacting]
     Active Substance: METHADONE HYDROCHLORIDE
     Route: 048
     Dates: start: 20160517, end: 20160703

REACTIONS (6)
  - Neutropenia [Recovered/Resolved]
  - Malignant neoplasm progression [Fatal]
  - Urinary tract infection [Recovering/Resolving]
  - Blood creatinine increased [Recovering/Resolving]
  - Electrocardiogram QT prolonged [Not Recovered/Not Resolved]
  - Leukopenia [Recovered/Resolved]

NARRATIVE: CASE EVENT DATE: 20160411
